FAERS Safety Report 10241472 (Version 1)
Quarter: 2014Q2

REPORT INFORMATION
  Report Type: Spontaneous
  Country: JP (occurrence: None)
  Receive Date: 20140613
  Receipt Date: 20140613
  Transmission Date: 20141212
  Serious: Yes (Hospitalization)
  Sender: FDA-Public Use
  Company Number: 2014TJP005382

PATIENT
  Age: 58 Year
  Sex: Male

DRUGS (6)
  1. NESINA TABLETS 25MG (ALOGLIPTIN BENZOATE) [Suspect]
     Indication: DIABETES MELLITUS
     Dosage: 1 IN 1 D
     Route: 048
     Dates: start: 20140327, end: 20140411
  2. AMOXAN [Suspect]
     Indication: DEPRESSION
     Dosage: 1 IN 1 D
     Route: 048
     Dates: start: 201401, end: 20140410
  3. AMLODIN OD [Concomitant]
  4. OLMETEC (OLMESARTAN MEDOXOMIL) [Concomitant]
  5. LEXAPRO [Concomitant]
  6. LENDORMIN [Concomitant]

REACTIONS (8)
  - Drug-induced liver injury [None]
  - Somnolence [None]
  - Nausea [None]
  - Dizziness [None]
  - Hepatic steatosis [None]
  - Alcohol use [None]
  - Lymphocyte stimulation test positive [None]
  - Gallbladder polyp [None]
